FAERS Safety Report 8985915 (Version 1)
Quarter: 2012Q4

REPORT INFORMATION
  Report Type: Report from Study
  Country: GB (occurrence: GB)
  Receive Date: 20121226
  Receipt Date: 20121226
  Transmission Date: 20130627
  Serious: Yes (Other)
  Sender: FDA-Public Use
  Company Number: GB-VERTEX PHARMACEUTICALS INC.-2012-026568

PATIENT
  Age: 42 Year
  Sex: Male

DRUGS (4)
  1. VX-950 (TELAPREVIR) [Suspect]
     Indication: HEPATITIS C
     Dosage: 750 mg, tid
     Dates: start: 20121116
  2. RIBAVIRIN [Suspect]
     Indication: HEPATITIS C
     Dosage: Dosage Form: Unspecified
     Route: 065
  3. RIBAVIRIN [Suspect]
     Dosage: Dosage Form: Unspecified
     Route: 065
  4. PEG INTERFERON [Concomitant]
     Indication: HEPATITIS C
     Dosage: Dosage Form: Unspecified
     Route: 065

REACTIONS (3)
  - Dry skin [Not Recovered/Not Resolved]
  - Anaemia [Not Recovered/Not Resolved]
  - Nausea [Not Recovered/Not Resolved]
